FAERS Safety Report 5197711-X (Version None)
Quarter: 2006Q4

REPORT INFORMATION
  Report Type: 
  Country: None (occurrence: None)
  Receive Date: 20061228
  Receipt Date: 20061214
  Transmission Date: 20070319
  Serious: Yes (Death, Hospitalization)
  Sender: FDA-Public Use
  Company Number: TCI2006A03113

PATIENT
  Age: 67 Year
  Sex: Male

DRUGS (3)
  1. LEUPLIN SR FOR INJECTION KIT 11.25 (LEUPROLIDE ACETATE) (INJECTION ) [Suspect]
     Indication: PROSTATE CANCER STAGE IV
     Dosage: 11.25 MG (11.25 MG, 1 IN 12 WK), SUBCUTANEOUS
     Route: 058
     Dates: start: 20051228, end: 20061116
  2. CASODEX [Concomitant]
  3. DECADRON [Concomitant]

REACTIONS (12)
  - ALANINE AMINOTRANSFERASE INCREASED [None]
  - ASPARTATE AMINOTRANSFERASE INCREASED [None]
  - BLOOD BILIRUBIN INCREASED [None]
  - CANCER PAIN [None]
  - GAMMA-GLUTAMYLTRANSFERASE INCREASED [None]
  - GENERAL PHYSICAL HEALTH DETERIORATION [None]
  - HEPATIC FUNCTION ABNORMAL [None]
  - HOT FLUSH [None]
  - MALIGNANT NEOPLASM PROGRESSION [None]
  - METASTASES TO LIVER [None]
  - PROSTATE CANCER METASTATIC [None]
  - PROSTATE CANCER STAGE IV [None]
